FAERS Safety Report 10190451 (Version 2)
Quarter: 2014Q2

REPORT INFORMATION
  Report Type: Spontaneous
  Country: US (occurrence: US)
  Receive Date: 20140522
  Receipt Date: 20140522
  Transmission Date: 20141212
  Serious: No
  Sender: FDA-Public Use
  Company Number: US-SANOFI-AVENTIS-2013SA019786

PATIENT
  Sex: Male

DRUGS (3)
  1. ELOXATIN [Suspect]
     Indication: COLORECTAL CANCER METASTATIC
     Route: 065
     Dates: start: 201204
  2. AVASTIN [Concomitant]
     Route: 065
     Dates: start: 201204
  3. IRINOTECAN [Concomitant]
     Route: 065
     Dates: start: 201204

REACTIONS (3)
  - Blister [Unknown]
  - Weight decreased [Recovered/Resolved]
  - Rash [Unknown]
